FAERS Safety Report 5802392-5 (Version None)
Quarter: 2008Q3

REPORT INFORMATION
  Report Type: 
  Country: None (occurrence: None)
  Receive Date: 20080707
  Receipt Date: 20080507
  Transmission Date: 20090109
  Serious: Yes (Hospitalization)
  Sender: FDA-Public Use
  Company Number: GB-MERCK-0708GBR00087

PATIENT
  Age: 55 Year
  Sex: Female
  Weight: 60 kg

DRUGS (15)
  1. DEXAMETHASONE [Suspect]
     Indication: ANAESTHESIA
     Route: 065
     Dates: start: 20061201, end: 20061201
  2. DEXAMETHASONE [Suspect]
     Route: 065
     Dates: start: 20050701, end: 20050701
  3. ALFENTANIL HYDROCHLORIDE [Suspect]
     Indication: ANAESTHESIA
     Route: 042
     Dates: start: 20050701, end: 20061201
  4. FENTANYL [Suspect]
     Indication: ANAESTHESIA
     Route: 042
     Dates: start: 20060601, end: 20060601
  5. FENTANYL [Suspect]
     Route: 042
     Dates: start: 20050701, end: 20050701
  6. PROPOFOL [Suspect]
     Indication: ANAESTHESIA
     Route: 042
     Dates: start: 20060601, end: 20060601
  7. ACETAMINOPHEN [Concomitant]
     Indication: MUSCULOSKELETAL PAIN
     Route: 048
     Dates: start: 20050501
  8. ACETAMINOPHEN [Concomitant]
     Indication: ANALGESIA
     Route: 048
     Dates: start: 20050501
  9. CODEINE PHOSPHATE [Concomitant]
     Indication: MUSCULOSKELETAL PAIN
     Route: 048
     Dates: start: 20050501
  10. GABAPENTIN [Suspect]
     Indication: MUSCULOSKELETAL PAIN
     Route: 048
     Dates: start: 20050501, end: 20060101
  11. ISOFLURANE [Suspect]
     Indication: GENERAL ANAESTHESIA
     Dates: start: 20060601, end: 20060601
  12. SEVOFLURANE [Suspect]
     Indication: GENERAL ANAESTHESIA
     Dates: start: 20061201, end: 20061201
  13. ALFENTANIL HYDROCHLORIDE [Concomitant]
     Route: 042
     Dates: start: 20050701, end: 20050701
  14. OXYGEN [Concomitant]
     Indication: VARICOSE VEIN OPERATION
     Dates: start: 20060601
  15. PROPOFOL [Concomitant]
     Route: 065

REACTIONS (6)
  - DRUG INTERACTION [None]
  - DYSTONIA [None]
  - MOVEMENT DISORDER [None]
  - MYOCLONUS [None]
  - MYOTONIA [None]
  - SINUS TACHYCARDIA [None]
